FAERS Safety Report 6189828-8 (Version None)
Quarter: 2009Q2

REPORT INFORMATION
  Report Type: 
  Country: None (occurrence: None)
  Receive Date: 20090514
  Receipt Date: 20090506
  Transmission Date: 20091009
  Serious: Yes (Hospitalization)
  Sender: FDA-Public Use
  Company Number: IT-BAYER-200919358GPV

PATIENT
  Age: 38 Year
  Sex: Female

DRUGS (2)
  1. AVELOX [Suspect]
     Indication: SINUSITIS
     Dosage: TOTAL DAILY DOSE: 400 MG  UNIT DOSE: 400 MG
     Route: 048
     Dates: start: 20090406, end: 20090409
  2. OKI [Concomitant]
     Indication: DRUG USE FOR UNKNOWN INDICATION
     Dosage: TOTAL DAILY DOSE: 80 MG  UNIT DOSE: 80 MG
     Route: 048
     Dates: start: 20090406, end: 20090406

REACTIONS (6)
  - DRY MOUTH [None]
  - MUSCULAR WEAKNESS [None]
  - PALPITATIONS [None]
  - PARAESTHESIA [None]
  - RECTAL TENESMUS [None]
  - SYNCOPE [None]
